FAERS Safety Report 25324504 (Version 1)
Quarter: 2025Q2

REPORT INFORMATION
  Report Type: Spontaneous
  Country: US (occurrence: None)
  Receive Date: 20250515
  Receipt Date: 20250515
  Transmission Date: 20250716
  Serious: Yes (Other)
  Sender: FDA-CTU
  Company Number: None

PATIENT
  Age: 31 Year
  Sex: Female
  Weight: 93.15 kg

DRUGS (2)
  1. ZEPBOUND [Suspect]
     Active Substance: TIRZEPATIDE
     Indication: Obesity
     Route: 058
     Dates: start: 20250508, end: 20250508
  2. ZEPBOUND [Concomitant]
     Active Substance: TIRZEPATIDE
     Dates: start: 20250508, end: 20250508

REACTIONS (2)
  - Suicidal ideation [None]
  - Product substitution issue [None]

NARRATIVE: CASE EVENT DATE: 20250508
